FAERS Safety Report 7310416-1 (Version None)
Quarter: 2011Q1

REPORT INFORMATION
  Report Type: 
  Country: None (occurrence: None)
  Receive Date: 20110224
  Receipt Date: 20100729
  Transmission Date: 20110831
  Serious: No
  Sender: FDA-Public Use
  Company Number: US-BRISTOL-MYERS SQUIBB COMPANY-15217334

PATIENT
  Age: 78 Year

DRUGS (1)
  1. METFORMIN HCL [Suspect]

REACTIONS (3)
  - LETHARGY [None]
  - SOMNOLENCE [None]
  - DECREASED ACTIVITY [None]
